FAERS Safety Report 25064750 (Version 1)
Quarter: 2025Q1

REPORT INFORMATION
  Report Type: Spontaneous
  Country: US (occurrence: US)
  Receive Date: 20250311
  Receipt Date: 20250311
  Transmission Date: 20250409
  Serious: No
  Sender: Unknown Manufacturer
  Company Number: US-NEURELIS, INC.-2024NEU000004

PATIENT
  Age: 26 Year
  Sex: Female
  Weight: 61.678 kg

DRUGS (1)
  1. VALTOCO [Suspect]
     Active Substance: DIAZEPAM
     Indication: Seizure
     Route: 045
     Dates: start: 2023

REACTIONS (2)
  - Aggression [Unknown]
  - Therapeutic response unexpected [Unknown]

NARRATIVE: CASE EVENT DATE: 20231201
